FAERS Safety Report 9162243 (Version 2)
Quarter: 2013Q2

REPORT INFORMATION
  Report Type: Spontaneous
  Country: US (occurrence: US)
  Receive Date: 20130314
  Receipt Date: 20130412
  Transmission Date: 20140414
  Serious: No
  Sender: FDA-Public Use
  Company Number: PHEH2013US003543

PATIENT
  Age: 70 Year
  Sex: Male
  Weight: 87.98 kg

DRUGS (7)
  1. TASIGNA [Suspect]
     Indication: CHRONIC MYELOID LEUKAEMIA
     Dosage: 300 MG, BID
     Route: 048
     Dates: start: 20120418
  2. DOCUSATE SODIUM [Concomitant]
  3. BABY ASPIRIN [Concomitant]
  4. ALENDRONATE [Concomitant]
  5. CITALOPRAM HYDROBROMIDE [Concomitant]
  6. AMITRIPTYLINE HCL [Concomitant]
  7. CRESTOR [Concomitant]

REACTIONS (4)
  - Chest discomfort [Not Recovered/Not Resolved]
  - Rash [Unknown]
  - Headache [Not Recovered/Not Resolved]
  - Flushing [Not Recovered/Not Resolved]
